FAERS Safety Report 20052384 (Version 1)
Quarter: 2021Q4

REPORT INFORMATION
  Report Type: Spontaneous
  Country: US (occurrence: US)
  Receive Date: 20211110
  Receipt Date: 20211110
  Transmission Date: 20220303
  Serious: Yes (Death, Hospitalization, Other)
  Sender: FDA-Public Use
  Company Number: US-BRISTOL-MYERS SQUIBB COMPANY-BMS-2021-118610

PATIENT
  Age: 82 Year
  Sex: Female
  Weight: 220 kg

DRUGS (1)
  1. ELIQUIS [Suspect]
     Active Substance: APIXABAN
     Indication: Aortic valve replacement
     Dosage: 2.5 MILLIGRAM, BID
     Route: 048
     Dates: start: 2020, end: 2021

REACTIONS (2)
  - Lung neoplasm malignant [Fatal]
  - Intentional product use issue [Unknown]

NARRATIVE: CASE EVENT DATE: 20200101
